FAERS Safety Report 8923916 (Version 1)
Quarter: 2012Q4

REPORT INFORMATION
  Report Type: Spontaneous
  Country: US (occurrence: None)
  Receive Date: 20121121
  Receipt Date: 20121121
  Transmission Date: 20130627
  Serious: No
  Sender: FDA-Public Use
  Company Number: None

PATIENT
  Sex: Female
  Weight: 110.68 kg

DRUGS (2)
  1. CEPHALEXIN [Suspect]
     Indication: CELLULITIS
     Route: 048
     Dates: start: 20120620, end: 201210
  2. CEPHALEXIN [Suspect]

REACTIONS (2)
  - Product substitution issue [None]
  - Product quality issue [None]
